FAERS Safety Report 10652226 (Version 1)
Quarter: 2014Q4

REPORT INFORMATION
  Report Type: Spontaneous
  Country: US (occurrence: None)
  Receive Date: 20141212
  Receipt Date: 20141212
  Transmission Date: 20150529
  Serious: Yes (Disabling)
  Sender: FDA-Public Use
  Company Number: None

PATIENT
  Age: 27 Year
  Sex: Female
  Weight: 58.06 kg

DRUGS (1)
  1. LARIAM [Suspect]
     Active Substance: MEFLOQUINE HYDROCHLORIDE
     Indication: PROPHYLAXIS
     Route: 048

REACTIONS (10)
  - Anxiety [None]
  - Terminal insomnia [None]
  - Mitochondrial toxicity [None]
  - Adrenal disorder [None]
  - Toxicity to various agents [None]
  - Post-traumatic stress disorder [None]
  - Depression [None]
  - Skin disorder [None]
  - Depressed mood [None]
  - Tremor [None]

NARRATIVE: CASE EVENT DATE: 20141210
